FAERS Safety Report 7130236 (Version 3)
Quarter: 2014Q3

REPORT INFORMATION
  Report Type: Spontaneous
  Country: US (occurrence: US)
  Receive Date: 20090924
  Receipt Date: 20140808
  Transmission Date: 20150326
  Serious: Yes (Other)
  Sender: FDA-Public Use
  Company Number: US-ASTRAZENECA-2009SE12046

PATIENT
  Age: 85 Year
  Sex: Female
  Weight: 68.9 kg

DRUGS (13)
  1. NEXIUM [Suspect]
     Active Substance: ESOMEPRAZOLE MAGNESIUM
     Indication: HIATUS HERNIA
     Route: 048
     Dates: start: 2004
  2. MULTIVITAMIN [Concomitant]
     Active Substance: VITAMINS
     Indication: HYPOVITAMINOSIS
     Dosage: 1 TAB DAILY
     Route: 048
  3. NEXIUM [Suspect]
     Active Substance: ESOMEPRAZOLE MAGNESIUM
     Indication: ULCER
     Route: 048
     Dates: start: 2004
  4. METOPROLOL TARTRATE. [Suspect]
     Active Substance: METOPROLOL TARTRATE
     Indication: BLOOD PRESSURE
     Route: 048
     Dates: start: 2006
  5. LISINOPRIL. [Concomitant]
     Active Substance: LISINOPRIL
     Indication: BLOOD PRESSURE
  6. LOVAZA [Concomitant]
     Active Substance: OMEGA-3-ACID ETHYL ESTERS
  7. VITAMIN D [Concomitant]
     Active Substance: CHOLECALCIFEROL
     Indication: HYPOVITAMINOSIS
     Dosage: 1000 DAILY
     Route: 048
  8. ECOTRIN ASPIRIN [Concomitant]
     Route: 048
  9. BIOTIN [Concomitant]
     Active Substance: BIOTIN
     Indication: HYPOVITAMINOSIS
     Dosage: 1 TAB/CAP DAILY
     Route: 048
  10. NEXIUM [Suspect]
     Active Substance: ESOMEPRAZOLE MAGNESIUM
     Indication: DIVERTICULUM
     Route: 048
     Dates: start: 2004
  11. FISH OIL [Concomitant]
     Active Substance: FISH OIL
     Indication: HYPOVITAMINOSIS
     Route: 048
  12. NEXIUM [Suspect]
     Active Substance: ESOMEPRAZOLE MAGNESIUM
     Indication: DYSPEPSIA
     Route: 048
     Dates: start: 2004
  13. VITAMIN B12 [Concomitant]
     Active Substance: CYANOCOBALAMIN
     Indication: HYPOVITAMINOSIS
     Route: 048

REACTIONS (10)
  - Fall [Recovered/Resolved]
  - Foot fracture [Unknown]
  - Lower limb fracture [Unknown]
  - Eructation [Unknown]
  - Ankle fracture [Recovered/Resolved]
  - Cholelithiasis [Recovered/Resolved]
  - Ulcer [Recovered/Resolved]
  - Hand fracture [Unknown]
  - Hiatus hernia [Not Recovered/Not Resolved]
  - Diverticulum [Unknown]

NARRATIVE: CASE EVENT DATE: 2009
